FAERS Safety Report 9973348 (Version 1)
Quarter: 2014Q1

REPORT INFORMATION
  Report Type: Report from Study
  Country: US (occurrence: US)
  Receive Date: 20140306
  Receipt Date: 20140306
  Transmission Date: 20141002
  Serious: No
  Sender: FDA-Public Use
  Company Number: US-ABBVIE-13P-163-1154735-00

PATIENT
  Age: 31 Year
  Sex: Female

DRUGS (6)
  1. HUMIRA [Suspect]
     Indication: CROHN^S DISEASE
     Dosage: LOADING DOSE
     Dates: start: 201309, end: 201309
  2. HUMIRA [Suspect]
     Dosage: 2ND LOADING DOSE
     Dates: start: 20131001, end: 20131001
  3. DEPAKOTE [Concomitant]
     Indication: BIPOLAR DISORDER
  4. LAMOTRIGINE [Concomitant]
     Indication: BIPOLAR DISORDER
  5. SYNTHROID [Concomitant]
     Indication: HYPOTHYROIDISM
     Dosage: 1.25 MCG OR MAYBE 125 MCG
  6. PENTASA [Concomitant]
     Indication: CROHN^S DISEASE

REACTIONS (3)
  - Nausea [Not Recovered/Not Resolved]
  - Vomiting [Not Recovered/Not Resolved]
  - Abdominal pain [Not Recovered/Not Resolved]
